FAERS Safety Report 10748035 (Version 2)
Quarter: 2015Q1

REPORT INFORMATION
  Report Type: Spontaneous
  Country: LV (occurrence: LV)
  Receive Date: 20150129
  Receipt Date: 20150323
  Transmission Date: 20150721
  Serious: Yes (Other)
  Sender: FDA-Public Use
  Company Number: LV-GLAXOSMITHKLINE-LV2015GSK008416

PATIENT
  Age: 75 Year
  Sex: Male

DRUGS (4)
  1. PRESTERAM [Concomitant]
     Indication: CORONARY ARTERY DISEASE
     Dosage: 5 MG, QD
     Route: 048
  2. SORVASTA [Concomitant]
     Indication: CORONARY ARTERY DISEASE
     Dosage: 10 MG, QD
     Route: 048
  3. COMBODART [Suspect]
     Active Substance: DUTASTERIDE\TAMSULOSIN
     Indication: PROSTATIC SPECIFIC ANTIGEN INCREASED
     Dosage: 1 DF, QD
     Route: 048
     Dates: start: 20130415, end: 20130716
  4. DICLAC [Concomitant]
     Active Substance: DICLOFENAC POTASSIUM
     Dosage: UNK UNK, PRN
     Route: 048

REACTIONS (2)
  - Face oedema [Recovered/Resolved]
  - Fluid retention [Recovered/Resolved]

NARRATIVE: CASE EVENT DATE: 20130518
